FAERS Safety Report 7909212-3 (Version None)
Quarter: 2011Q4

REPORT INFORMATION
  Report Type: 
  Country: None (occurrence: None)
  Receive Date: 20111111
  Receipt Date: 20111030
  Transmission Date: 20120403
  Serious: Yes (Hospitalization, Other)
  Sender: FDA-Public Use
  Company Number: IL-AMGEN-ISRSP2011057036

PATIENT
  Sex: Female

DRUGS (2)
  1. PREDNISONE TAB [Concomitant]
     Dosage: UNK
  2. ENBREL [Suspect]
     Indication: RHEUMATOID ARTHRITIS
     Dosage: UNK UNK, UNK

REACTIONS (2)
  - CEREBROVASCULAR ACCIDENT [None]
  - APALLIC SYNDROME [None]
